FAERS Safety Report 5601460-0 (Version None)
Quarter: 2008Q1

REPORT INFORMATION
  Report Type: 
  Country: None (occurrence: None)
  Receive Date: 20080124
  Receipt Date: 20080121
  Transmission Date: 20080703
  Serious: Yes (Other)
  Sender: FDA-Public Use
  Company Number: TW-ASTRAZENECA-2008AC00255

PATIENT
  Age: 69 Year
  Sex: Female

DRUGS (2)
  1. GEFITINIB [Suspect]
     Indication: LUNG NEOPLASM MALIGNANT
     Route: 048
  2. RADIOTHERAPY [Suspect]
     Indication: LUNG NEOPLASM MALIGNANT
     Dosage: SINGLE COURSE (25 TREATMENTS) - 200 CGY PER TREATMENT.

REACTIONS (1)
  - DERMATOSIS [None]
